FAERS Safety Report 25845505 (Version 1)
Quarter: 2025Q3

REPORT INFORMATION
  Report Type: Spontaneous
  Country: US (occurrence: US)
  Receive Date: 20250925
  Receipt Date: 20250925
  Transmission Date: 20251021
  Serious: No
  Sender: LYNE LABORATORIES
  Company Number: US-Lyne Laboratories Inc.-2185270

PATIENT

DRUGS (4)
  1. NYSTATIN [Suspect]
     Active Substance: NYSTATIN
     Indication: Dermatitis diaper
  2. AQUAPHOR [Concomitant]
     Active Substance: PETROLATUM
  3. VASELINE PURE [Concomitant]
     Active Substance: PETROLATUM
  4. Destine [Concomitant]

REACTIONS (1)
  - Drug ineffective for unapproved indication [Unknown]
